FAERS Safety Report 8606811 (Version 4)
Quarter: 2014Q2

REPORT INFORMATION
  Report Type: Spontaneous
  Country: US (occurrence: US)
  Receive Date: 20120611
  Receipt Date: 20140404
  Transmission Date: 20141212
  Serious: Yes (Hospitalization, Disabling, Other)
  Sender: FDA-Public Use
  Company Number: US-ASTRAZENECA-2012SE36257

PATIENT
  Age: 55 Year
  Sex: Female
  Weight: 102.1 kg

DRUGS (33)
  1. NEXIUM [Suspect]
     Indication: GASTROOESOPHAGEAL REFLUX DISEASE
     Route: 048
     Dates: start: 2000
  2. NEXIUM [Suspect]
     Indication: GASTROOESOPHAGEAL REFLUX DISEASE
     Route: 048
     Dates: start: 20021114
  3. NEXIUM [Suspect]
     Indication: GASTROOESOPHAGEAL REFLUX DISEASE
     Route: 048
     Dates: start: 20021117
  4. PRILOSEC [Suspect]
     Route: 048
     Dates: start: 1990, end: 2000
  5. PRILOSEC [Suspect]
     Route: 048
     Dates: start: 20010401
  6. PREVACID [Concomitant]
     Dates: start: 1990
  7. ZANTAC [Concomitant]
  8. PEPCID [Concomitant]
  9. TUMS [Concomitant]
  10. MILK OF MAGNESIA [Concomitant]
  11. GAVISCON [Concomitant]
  12. PEPTO BISMOL [Concomitant]
  13. ROLAIDS [Concomitant]
  14. MYLANTA [Concomitant]
  15. DARVOCET [Concomitant]
     Indication: PAIN
     Route: 048
     Dates: start: 20010102
  16. SURFAK [Concomitant]
     Indication: CONSTIPATION
     Route: 048
     Dates: start: 20100109
  17. NORCO [Concomitant]
     Route: 048
     Dates: start: 20100105
  18. THERAGRAN [Concomitant]
     Route: 048
     Dates: start: 20100105
  19. PROTONIX [Concomitant]
     Route: 048
     Dates: start: 20080410
  20. AMBIEN [Concomitant]
     Route: 048
     Dates: start: 20100105
  21. CYCLOBENZAPRINE [Concomitant]
     Route: 048
     Dates: start: 20020710
  22. VITAMINE D [Concomitant]
     Dosage: EVERY 10 DAYS
     Route: 048
  23. CELEBREX [Concomitant]
     Dates: start: 20040626
  24. CYMBALTA [Concomitant]
     Route: 048
     Dates: start: 20060807
  25. TRAMADOL [Concomitant]
     Route: 048
     Dates: start: 20080110
  26. MOBIC [Concomitant]
     Route: 048
     Dates: start: 20050103
  27. AVANDIA [Concomitant]
     Route: 048
     Dates: start: 20040922
  28. ZYRTEC [Concomitant]
     Route: 048
     Dates: start: 20050613
  29. PAXIL [Concomitant]
     Route: 048
     Dates: start: 20020404
  30. GLYBURIDE [Concomitant]
     Route: 048
     Dates: start: 20011223
  31. WELLBUTRIN SR [Concomitant]
     Route: 048
     Dates: start: 20030830
  32. SIMVASTATIN [Concomitant]
     Route: 048
     Dates: start: 20080919
  33. GABAPENTIN [Concomitant]
     Dosage: 01 TO 03 CAP AT NIGHT
     Route: 048
     Dates: start: 20100803

REACTIONS (17)
  - Wrist fracture [Unknown]
  - Neoplasm malignant [Unknown]
  - Pain in extremity [Unknown]
  - Upper limb fracture [Unknown]
  - Radius fracture [Unknown]
  - Osteoporosis [Unknown]
  - Multiple fractures [Unknown]
  - Foot fracture [Unknown]
  - Ulna fracture [Unknown]
  - Road traffic accident [Unknown]
  - Diabetes mellitus [Unknown]
  - Vitamin D deficiency [Unknown]
  - Arthritis [Unknown]
  - Cataract [Unknown]
  - Fall [Unknown]
  - Joint injury [Unknown]
  - Depression [Unknown]
